FAERS Safety Report 10217507 (Version 5)
Quarter: 2015Q4

REPORT INFORMATION
  Report Type: Spontaneous
  Country: CA (occurrence: CA)
  Receive Date: 20140604
  Receipt Date: 20151214
  Transmission Date: 20160304
  Serious: Yes (Hospitalization, Other)
  Sender: FDA-Public Use
  Company Number: CA-GILEAD-2014-0097650

PATIENT
  Age: 76 Year
  Sex: Female

DRUGS (29)
  1. ELTROXIN [Concomitant]
     Active Substance: LEVOTHYROXINE
  2. ELTROXIN [Concomitant]
     Active Substance: LEVOTHYROXINE
  3. ATORVASTATIN [Concomitant]
     Active Substance: ATORVASTATIN
     Indication: PRODUCT USED FOR UNKNOWN INDICATION
  4. ATORVASTATIN [Concomitant]
     Active Substance: ATORVASTATIN
     Dosage: 20 MG, UNK
  5. ATORVASTATIN [Concomitant]
     Active Substance: ATORVASTATIN
     Dosage: 20 MG, UNK
  6. DENOSUMAB [Concomitant]
     Active Substance: DENOSUMAB
     Indication: PRODUCT USED FOR UNKNOWN INDICATION
     Dosage: UNK
  7. FUROSEMIDE. [Concomitant]
     Active Substance: FUROSEMIDE
  8. CALCIUM [Concomitant]
     Active Substance: CALCIUM
     Indication: PRODUCT USED FOR UNKNOWN INDICATION
     Dosage: UNK
  9. RAMIPRIL. [Concomitant]
     Active Substance: RAMIPRIL
     Dosage: UNK
  10. ATORVASTATIN [Concomitant]
     Active Substance: ATORVASTATIN
  11. FUROSEMIDE. [Concomitant]
     Active Substance: FUROSEMIDE
  12. FUROSEMIDE. [Concomitant]
     Active Substance: FUROSEMIDE
  13. WARFARIN [Concomitant]
     Active Substance: WARFARIN
     Indication: PRODUCT USED FOR UNKNOWN INDICATION
     Dosage: UNK
  14. AMBRISENTAN [Suspect]
     Active Substance: AMBRISENTAN
     Indication: PULMONARY ARTERIAL HYPERTENSION
     Dosage: 10MG PER DAY
     Route: 065
     Dates: start: 20140310
  15. ELTROXIN [Concomitant]
     Active Substance: LEVOTHYROXINE
     Indication: PRODUCT USED FOR UNKNOWN INDICATION
  16. ATORVASTATIN [Concomitant]
     Active Substance: ATORVASTATIN
  17. DENOSUMAB [Concomitant]
     Active Substance: DENOSUMAB
     Dosage: UNK
  18. FUROSEMIDE. [Concomitant]
     Active Substance: FUROSEMIDE
  19. ELTROXIN [Concomitant]
     Active Substance: LEVOTHYROXINE
     Dosage: 0.1 MG, UNK
  20. FUROSEMIDE. [Concomitant]
     Active Substance: FUROSEMIDE
     Indication: PRODUCT USED FOR UNKNOWN INDICATION
  21. WARFARIN [Concomitant]
     Active Substance: WARFARIN
     Dosage: UNK
  22. RAMIPRIL. [Concomitant]
     Active Substance: RAMIPRIL
     Indication: PRODUCT USED FOR UNKNOWN INDICATION
     Dosage: UNK
  23. ELTROXIN [Concomitant]
     Active Substance: LEVOTHYROXINE
  24. ATORVASTATIN [Concomitant]
     Active Substance: ATORVASTATIN
     Dosage: 20 MG, UNK
  25. CALCIUM [Concomitant]
     Active Substance: CALCIUM
     Dosage: UNK
  26. ELTROXIN [Concomitant]
     Active Substance: LEVOTHYROXINE
  27. VITAMIN D [Concomitant]
     Active Substance: CHOLECALCIFEROL
  28. FUROSEMIDE. [Concomitant]
     Active Substance: FUROSEMIDE
     Dosage: 20 MG, UNK
  29. ASA [Concomitant]
     Active Substance: ASPIRIN
     Indication: PRODUCT USED FOR UNKNOWN INDICATION
     Dosage: UNK

REACTIONS (13)
  - Feeling cold [Not Recovered/Not Resolved]
  - Anaemia [Not Recovered/Not Resolved]
  - Dyspnoea [Not Recovered/Not Resolved]
  - Gait disturbance [Not Recovered/Not Resolved]
  - Sinus congestion [Unknown]
  - Nasopharyngitis [Unknown]
  - Fatigue [Not Recovered/Not Resolved]
  - Walking aid user [Not Recovered/Not Resolved]
  - Headache [Unknown]
  - Oropharyngeal pain [Not Recovered/Not Resolved]
  - Asthenia [Not Recovered/Not Resolved]
  - Lung disorder [Recovered/Resolved]
  - Oedema peripheral [Not Recovered/Not Resolved]

NARRATIVE: CASE EVENT DATE: 20140310
